FAERS Safety Report 5547274-1 (Version None)
Quarter: 2007Q4

REPORT INFORMATION
  Report Type: 
  Country: None (occurrence: None)
  Receive Date: 20071128
  Receipt Date: 20061219
  Transmission Date: 20080405
  Serious: Yes (Other)
  Sender: FDA-Public Use
  Company Number: 2006155166

PATIENT
  Sex: Female

DRUGS (3)
  1. LIPITOR [Suspect]
  2. SYNTHROID [Concomitant]
  3. METOPROLOL TARTRATE [Concomitant]

REACTIONS (3)
  - DIZZINESS [None]
  - HEPATIC ENZYME INCREASED [None]
  - PRURITUS [None]
